FAERS Safety Report 5373613-0 (Version None)
Quarter: 2007Q2

REPORT INFORMATION
  Report Type: 
  Country: None (occurrence: None)
  Receive Date: 20070626
  Receipt Date: 20070521
  Transmission Date: 20071010
  Serious: Yes (Hospitalization)
  Sender: FDA-Public Use
  Company Number: ANTA0700105

PATIENT
  Sex: Male

DRUGS (2)
  1. FENOFIBRATE [Suspect]
     Indication: HYPERCHOLESTEROLAEMIA
  2. STATIN (ULINASTATIN) [Concomitant]

REACTIONS (2)
  - MYALGIA [None]
  - MYOGLOBINURIA [None]
